FAERS Safety Report 7313352-X (Version None)
Quarter: 2011Q1

REPORT INFORMATION
  Report Type: 
  Country: None (occurrence: None)
  Receive Date: 20110217
  Receipt Date: 20110217
  Transmission Date: 20110831
  Serious: Yes (Hospitalization, Other)
  Sender: FDA-Public Use
  Company Number: None

PATIENT
  Age: 34 Year
  Sex: Female
  Weight: 55.3388 kg

DRUGS (1)
  1. LUNESTA [Suspect]
     Indication: INSOMNIA
     Dosage: ONE AT NIGHT PO
     Route: 048

REACTIONS (8)
  - CONDITION AGGRAVATED [None]
  - LEGAL PROBLEM [None]
  - PHYSICAL ASSAULT [None]
  - ABNORMAL BEHAVIOUR [None]
  - DEPRESSION [None]
  - ALCOHOL USE [None]
  - HALLUCINATION [None]
  - AMNESIA [None]
